FAERS Safety Report 10133934 (Version 2)
Quarter: 2014Q2

REPORT INFORMATION
  Report Type: Report from Study
  Country: US (occurrence: US)
  Receive Date: 20140428
  Receipt Date: 20140428
  Transmission Date: 20141212
  Serious: Yes (Death)
  Sender: FDA-Public Use
  Company Number: US-EXELIXIS-CABO 14004081

PATIENT
  Sex: Male

DRUGS (2)
  1. CABOZANTINIB [Suspect]
     Indication: COLON CANCER
     Dosage: 60 MG, QD
     Route: 048
     Dates: start: 20140204
  2. OXYCODONE [Concomitant]

REACTIONS (5)
  - Death [Fatal]
  - Urticaria papular [Not Recovered/Not Resolved]
  - Rash pruritic [Not Recovered/Not Resolved]
  - Dry skin [Not Recovered/Not Resolved]
  - Off label use [Not Recovered/Not Resolved]
